FAERS Safety Report 5259712-2 (Version None)
Quarter: 2007Q1

REPORT INFORMATION
  Report Type: 
  Country: None (occurrence: None)
  Receive Date: 20070307
  Receipt Date: 20070221
  Transmission Date: 20070707
  Serious: Yes (Hospitalization)
  Sender: FDA-Public Use
  Company Number: 07US000874

PATIENT
  Age: 55 Year
  Sex: Female

DRUGS (4)
  1. LITHIUM CARBONATE [Suspect]
     Indication: BIPOLAR DISORDER
  2. RISPERIDONE [Concomitant]
  3. THIOTHIXENE [Concomitant]
  4. BENZTROPINE MESYLATE [Concomitant]

REACTIONS (3)
  - ENCEPHALOPATHY [None]
  - INFECTION [None]
  - THERAPEUTIC AGENT TOXICITY [None]
